FAERS Safety Report 17451425 (Version 2)
Quarter: 2020Q4

REPORT INFORMATION
  Report Type: Spontaneous
  Country: US (occurrence: US)
  Receive Date: 20200224
  Receipt Date: 20201001
  Transmission Date: 20210113
  Serious: Yes (Other)
  Sender: FDA-Public Use
  Company Number: US-PFIZER INC-2020078732

PATIENT
  Age: 62 Year
  Sex: Female
  Weight: 162.81 kg

DRUGS (1)
  1. XELJANZ XR [Suspect]
     Active Substance: TOFACITINIB CITRATE
     Indication: RHEUMATOID ARTHRITIS
     Dosage: 11 MG
     Dates: start: 200703

REACTIONS (2)
  - Deafness [Not Recovered/Not Resolved]
  - Nerve injury [Not Recovered/Not Resolved]
